FAERS Safety Report 11658847 (Version 4)
Quarter: 2015Q4

REPORT INFORMATION
  Report Type: Report from Study
  Country: US (occurrence: US)
  Receive Date: 20151026
  Receipt Date: 20151029
  Transmission Date: 20160304
  Serious: No
  Sender: FDA-Public Use
  Company Number: PHHY2013US095532

PATIENT
  Sex: Female

DRUGS (16)
  1. PREDNISOLONE. [Suspect]
     Active Substance: PREDNISOLONE
     Indication: PRODUCT USED FOR UNKNOWN INDICATION
     Dosage: 60 MG, QD FOR 5 DAYS
     Route: 065
  2. QVAR [Concomitant]
     Active Substance: BECLOMETHASONE DIPROPIONATE
     Indication: PRODUCT USED FOR UNKNOWN INDICATION
     Dosage: 2 DF,  80 BID (2 PUFF BID)
     Route: 065
  3. XOLAIR [Suspect]
     Active Substance: OMALIZUMAB
     Indication: ECZEMA
  4. PREDNISOLONE. [Suspect]
     Active Substance: PREDNISOLONE
     Dosage: 40 MG, QD FOR 5 DAYS
     Route: 065
  5. XOLAIR [Suspect]
     Active Substance: OMALIZUMAB
     Indication: ASTHMA
     Dosage: 375 MG, BIW
     Route: 058
     Dates: start: 20121128, end: 201311
  6. PREDNISOLONE. [Suspect]
     Active Substance: PREDNISOLONE
     Dosage: 30 MG, QD FOR 5 DAYS
     Route: 065
  7. CETAPHIL [Concomitant]
     Active Substance: AVOBENZONE\OCTOCRYLENE\TRICLOSAN
     Indication: PRODUCT USED FOR UNKNOWN INDICATION
     Route: 065
  8. ALBUTEROL. [Concomitant]
     Active Substance: ALBUTEROL
     Indication: PRODUCT USED FOR UNKNOWN INDICATION
     Dosage: UNK UKN, PRN  (ONCE IN 4 HRS)
     Route: 065
  9. TRIAMCINOLONE [Concomitant]
     Active Substance: TRIAMCINOLONE
     Indication: ECZEMA
     Dosage: UNK UKN, PRN (AS NEEDED FOR ECZEMA FLARES)
     Route: 065
  10. DERMA SMOOTHE [Concomitant]
     Indication: PRODUCT USED FOR UNKNOWN INDICATION
     Route: 065
  11. BENADRYL                           /00647601/ [Concomitant]
     Active Substance: CAMPHOR\DIPHENHYDRAMINE\ZINC OXIDE
     Indication: PRODUCT USED FOR UNKNOWN INDICATION
     Route: 065
  12. ADVAIR HFA [Concomitant]
     Active Substance: FLUTICASONE PROPIONATE\SALMETEROL XINAFOATE
     Indication: PRODUCT USED FOR UNKNOWN INDICATION
     Dosage: 2 DF, 230  BID (2 PUFF BID)
     Route: 065
  13. ACLOVATE [Concomitant]
     Active Substance: ALCLOMETASONE DIPROPIONATE
     Indication: PRODUCT USED FOR UNKNOWN INDICATION
     Route: 065
  14. XOLAIR [Suspect]
     Active Substance: OMALIZUMAB
     Indication: RHINITIS ALLERGIC
  15. EPIPEN [Concomitant]
     Active Substance: EPINEPHRINE
     Indication: PRODUCT USED FOR UNKNOWN INDICATION
     Dosage: UNK
     Route: 065
  16. ZYRTEC [Concomitant]
     Active Substance: CETIRIZINE HYDROCHLORIDE
     Indication: PRODUCT USED FOR UNKNOWN INDICATION
     Dosage: 10 MG, QD
     Route: 065

REACTIONS (8)
  - Hypersensitivity [Unknown]
  - Food allergy [Unknown]
  - Eczema [Unknown]
  - Cough [Not Recovered/Not Resolved]
  - Dry skin [Unknown]
  - Asthma [Not Recovered/Not Resolved]
  - Rash papular [Unknown]
  - Nasopharyngitis [Unknown]
